FAERS Safety Report 17210273 (Version 2)
Quarter: 2020Q1

REPORT INFORMATION
  Report Type: Spontaneous
  Country: GB (occurrence: GB)
  Receive Date: 20191227
  Receipt Date: 20200109
  Transmission Date: 20200409
  Serious: Yes (Death)
  Sender: FDA-Public Use
  Company Number: GB-MYLANLABS-2019M1128965

PATIENT
  Sex: Male
  Weight: 61.9 kg

DRUGS (5)
  1. CLOZARIL [Suspect]
     Active Substance: CLOZAPINE
     Dosage: 400 MILLIGRAM, PM
     Route: 048
     Dates: start: 20100507
  2. CLOZARIL [Suspect]
     Active Substance: CLOZAPINE
     Indication: SCHIZOPHRENIA
     Dosage: 350 MILLIGRAM, AM
     Route: 048
     Dates: start: 20100507
  3. TRAZODONE [Concomitant]
     Active Substance: TRAZODONE HYDROCHLORIDE
     Indication: DEPRESSED MOOD
     Dosage: 300 MILLIGRAM, PM
     Route: 048
  4. PROPRANOLOL [Concomitant]
     Active Substance: PROPRANOLOL HYDROCHLORIDE
     Indication: ANXIETY
     Dosage: 40 MILLIGRAM, TID (120 MG)
     Route: 048
  5. ZOPICLONE [Concomitant]
     Active Substance: ZOPICLONE
     Indication: SOMNOLENCE
     Dosage: 7.5 MILLIGRAM, PM
     Route: 048

REACTIONS (1)
  - Accident [Fatal]

NARRATIVE: CASE EVENT DATE: 201911
